FAERS Safety Report 16614954 (Version 1)
Quarter: 2019Q3

REPORT INFORMATION
  Report Type: Spontaneous
  Country: US (occurrence: US)
  Receive Date: 20190610
  Receipt Date: 20190610
  Transmission Date: 20191004
  Serious: Yes (Hospitalization, Other)
  Sender: FDA-Public Use
  Company Number: None

PATIENT
  Age: 37 Year
  Sex: Female
  Weight: 149.23 kg

DRUGS (1)
  1. OCRELIZUMAB 600MG IV Q6 MONTHS [Suspect]
     Active Substance: OCRELIZUMAB
     Dosage: ?          OTHER FREQUENCY:EVERY 6 MONTHS;?
     Route: 042
     Dates: start: 201709, end: 20190329

REACTIONS (2)
  - Brain abscess [None]
  - Intracranial mass [None]

NARRATIVE: CASE EVENT DATE: 20190520
